FAERS Safety Report 6144435-8 (Version None)
Quarter: 2009Q2

REPORT INFORMATION
  Report Type: 
  Country: None (occurrence: None)
  Receive Date: 20090406
  Receipt Date: 20090327
  Transmission Date: 20091009
  Serious: Yes (Other)
  Sender: FDA-Public Use
  Company Number: GB-ELI_LILLY_AND_COMPANY-GB200903007222

PATIENT
  Sex: Female

DRUGS (4)
  1. BYETTA [Suspect]
     Dosage: 5 UG, DAILY (1/D)
     Route: 065
     Dates: start: 20080208, end: 20080309
  2. BYETTA [Suspect]
     Dosage: 10 UG, DAILY (1/D)
     Route: 065
     Dates: start: 20080310
  3. BYETTA [Suspect]
     Dosage: 5 UG, DAILY (1/D)
     Route: 065
     Dates: start: 20090101
  4. METFORMIN HCL [Concomitant]
     Dosage: 850 MG, DAILY (1/D)
     Route: 065

REACTIONS (3)
  - ABDOMINAL PAIN [None]
  - GALLBLADDER OPERATION [None]
  - PANCREATITIS [None]
